FAERS Safety Report 8792556 (Version 1)
Quarter: 2012Q4

REPORT INFORMATION
  Report Type: 
  Country: US (occurrence: US)
  Receive Date: 20120918
  Receipt Date: 20120918
  Transmission Date: 20130627
  Serious: Yes (Death)
  Sender: FDA-Public Use
  Company Number: US-JNJFOC-20120906286

PATIENT
  Age: 55 Year
  Sex: Male

DRUGS (8)
  1. INVEGA SUSTENNA [Suspect]
     Indication: SCHIZOPHRENIA
     Route: 030
     Dates: start: 201201
  2. PROZAC [Concomitant]
     Route: 048
  3. HYDROCODONE [Concomitant]
     Indication: PAIN
     Route: 048
  4. ARICEPT [Concomitant]
     Route: 048
  5. TRICOR [Concomitant]
     Route: 048
  6. NAMENDA [Concomitant]
     Route: 048
  7. K-DUR [Concomitant]
     Route: 048
  8. ZANTAC [Concomitant]
     Route: 048

REACTIONS (2)
  - Death [Fatal]
  - Bradycardia [Unknown]
